FAERS Safety Report 21756992 (Version 5)
Quarter: 2025Q3

REPORT INFORMATION
  Report Type: Spontaneous
  Country: US (occurrence: US)
  Receive Date: 20221220
  Receipt Date: 20250816
  Transmission Date: 20251020
  Serious: No
  Sender: ALEXION PHARMACEUTICALS
  Company Number: 2022A397163

PATIENT
  Age: 67 Year
  Sex: Male
  Weight: 103.42 kg

DRUGS (1)
  1. BREZTRI [Suspect]
     Active Substance: BUDESONIDE\FORMOTEROL\GLYCOPYRROLATE
     Indication: Chronic obstructive pulmonary disease
     Dosage: 160/9/4.8 UG; TWO PUFFS TWICE A DAY

REACTIONS (2)
  - Visual impairment [Not Recovered/Not Resolved]
  - Drug delivery system malfunction [Recovered/Resolved]

NARRATIVE: CASE EVENT DATE: 20221129
